FAERS Safety Report 24868862 (Version 1)
Quarter: 2025Q1

REPORT INFORMATION
  Report Type: Spontaneous
  Country: US (occurrence: US)
  Receive Date: 20250121
  Receipt Date: 20250121
  Transmission Date: 20250409
  Serious: Yes (Other)
  Sender: CHURCH & DWIGHT
  Company Number: US-ChurchDwight-2025-CDW-00037

PATIENT
  Age: 50 Year
  Sex: Male

DRUGS (2)
  1. ORAJEL 4X MEDICATED FOR TOOTHACHE AND GUM, CREAM [Suspect]
     Active Substance: BENZALKONIUM CHLORIDE\BENZOCAINE\MENTHOL\ZINC CATION
     Indication: Product used for unknown indication
     Route: 061
     Dates: start: 20250105, end: 20250107
  2. SERTRALINE HYDROCHLORIDE [Concomitant]
     Active Substance: SERTRALINE HYDROCHLORIDE
     Indication: Product used for unknown indication
     Route: 065

REACTIONS (8)
  - Dyspnoea [Recovered/Resolved]
  - Overdose [Unknown]
  - Hypoaesthesia [Recovered/Resolved]
  - Dry mouth [Recovered/Resolved]
  - Hypertension [Recovered/Resolved]
  - Somnolence [Recovered/Resolved]
  - Accidental exposure to product [Unknown]
  - Dry skin [Recovered/Resolved]

NARRATIVE: CASE EVENT DATE: 20250106
